FAERS Safety Report 15704782 (Version 1)
Quarter: 2018Q4

REPORT INFORMATION
  Report Type: Spontaneous
  Country: GB (occurrence: GB)
  Receive Date: 20181210
  Receipt Date: 20181210
  Transmission Date: 20190205
  Serious: Yes (Other)
  Sender: FDA-Public Use
  Company Number: GB-TEVA-2018-GB-986563

PATIENT
  Age: 42 Year
  Sex: Female

DRUGS (3)
  1. CERELLE [Concomitant]
     Active Substance: DESOGESTREL
  2. PARACETAMOL [Concomitant]
     Active Substance: ACETAMINOPHEN
  3. GENERICS UK CO-AMOXICLAV [Suspect]
     Active Substance: AMOXICILLIN\CLAVULANIC ACID
     Indication: ACUTE SINUSITIS
     Dosage: 500MG/125MG
     Route: 048
     Dates: start: 20181024, end: 20181030

REACTIONS (1)
  - Drug-induced liver injury [Recovering/Resolving]

NARRATIVE: CASE EVENT DATE: 20181026
